FAERS Safety Report 9124802 (Version 1)
Quarter: 2013Q1

REPORT INFORMATION
  Report Type: Report from Study
  Country: JP (occurrence: JP)
  Receive Date: 20130227
  Receipt Date: 20130227
  Transmission Date: 20140127
  Serious: Yes (Hospitalization)
  Sender: FDA-Public Use
  Company Number: JP-ELI_LILLY_AND_COMPANY-JP201212008044

PATIENT
  Age: 29 Year
  Sex: Male
  Weight: 129.6 kg

DRUGS (4)
  1. DULOXETINE HYDROCHLORIDE [Suspect]
     Indication: DYSTHYMIC DISORDER
     Dosage: 20 MG, QD
     Route: 048
     Dates: start: 20110708, end: 20110720
  2. DULOXETINE HYDROCHLORIDE [Suspect]
     Dosage: 40 MG, QD
     Route: 048
     Dates: start: 20110721, end: 20110728
  3. DULOXETINE HYDROCHLORIDE [Suspect]
     Dosage: 20 MG, QD
     Route: 048
     Dates: start: 20110729, end: 20110731
  4. BENZALIN [Concomitant]
     Indication: DYSTHYMIC DISORDER
     Dosage: UNK
     Dates: start: 20110715, end: 20110731

REACTIONS (1)
  - Activation syndrome [Recovered/Resolved]
